FAERS Safety Report 4575129-8 (Version None)
Quarter: 2005Q1

REPORT INFORMATION
  Report Type: 
  Country: None (occurrence: None)
  Receive Date: 20050208
  Receipt Date: 20040816
  Transmission Date: 20050727
  Serious: Yes (Life-Threatening, Other)
  Sender: FDA-Public Use
  Company Number: PHBS2004JP10798

PATIENT
  Age: 12 Year
  Sex: Female

DRUGS (4)
  1. AZATHIOPRINE [Concomitant]
     Dates: start: 20040701
  2. PROGRAF [Suspect]
  3. NEORAL [Suspect]
     Indication: RENAL TRANSPLANT
     Dosage: 360 MG/D
     Route: 048
     Dates: start: 20040727, end: 20040805
  4. PREDNISOLONE [Concomitant]
     Dosage: 20 MG/D
     Route: 048
     Dates: start: 20040728

REACTIONS (7)
  - ANAPHYLACTIC REACTION [None]
  - CONVULSION [None]
  - DEPRESSED LEVEL OF CONSCIOUSNESS [None]
  - FALL [None]
  - OEDEMA [None]
  - RASH [None]
  - TOXIC INDUCED ENCEPHALOPATHY [None]
